FAERS Safety Report 6551363-2 (Version None)
Quarter: 2010Q1

REPORT INFORMATION
  Report Type: 
  Country: None (occurrence: None)
  Receive Date: 20100120
  Receipt Date: 20100106
  Transmission Date: 20100710
  Serious: Yes (Life-Threatening, Hospitalization)
  Sender: FDA-Public Use
  Company Number: DSM-2010-00031

PATIENT
  Age: 77 Year
  Sex: Male

DRUGS (11)
  1. OLMESARTAN MEDOXOMIL [Suspect]
     Indication: DRUG USE FOR UNKNOWN INDICATION
     Dosage: 20 MG (1 IN 1 D), ORAL
     Route: 048
     Dates: start: 20090101, end: 20090420
  2. FUROSEMIDE (FUROSEMIDE) (FUROSEMIDE) [Suspect]
     Indication: DRUG USE FOR UNKNOWN INDICATION
     Dosage: 40 MG, ORAL
     Route: 048
  3. DOMPERIDONE (DOMPERIDONE) (DOMPERIDONE) [Concomitant]
  4. TADENAN (PYGEUM AFRICANUM) (PYGEUM AFRICANUM) [Concomitant]
  5. METFORMIN (METFORMIN HYDROCHLORIDE) (METFORMIN HYDROCHLORIDE) [Concomitant]
  6. ZOLPIDEM (ZOLPIDEM) (ZOLPIDEM) [Concomitant]
  7. THERALENE (ALIMEMAZINE TARTRATE) (ALIMEMAZINE TARTRATE) [Concomitant]
  8. IXPRIM (PARACETAMIL, TRAMADOL HYDROCHLORIDE) (PARACETAMOL, TRAMADOL HY [Concomitant]
  9. LOVENOX (HEPARIN-FRACTION, SODIUM SALT) (HEPARIN-FRACTION, SODIUM SALT [Concomitant]
  10. DIGOXINE (DIGOXIN) (DIGOXIN) [Concomitant]
  11. PRAVASTATIN A (PRAVASTATIN SODIUM) (TABLET) (PRAVASTATIN SODIUM) [Concomitant]

REACTIONS (2)
  - RENAL FAILURE ACUTE [None]
  - RENAL TUBULAR NECROSIS [None]
